FAERS Safety Report 9047792 (Version 1)
Quarter: 2013Q1

REPORT INFORMATION
  Report Type: Spontaneous
  Country: US (occurrence: US)
  Receive Date: 20130204
  Receipt Date: 20130204
  Transmission Date: 20140127
  Serious: No
  Sender: FDA-Public Use
  Company Number: US-AMGEN-USASP2013000192

PATIENT
  Age: 58 Year
  Sex: Female
  Weight: 60.32 kg

DRUGS (2)
  1. ENBREL [Suspect]
     Indication: RHEUMATOID ARTHRITIS
     Dosage: 50 MG, QWK
     Route: 058
     Dates: start: 20121226, end: 20130102
  2. NUCYNTA [Concomitant]
     Dosage: 50 MG, UNK
     Route: 048
     Dates: start: 20130101, end: 20130102

REACTIONS (5)
  - Rash macular [Recovered/Resolved]
  - Feeling hot [Not Recovered/Not Resolved]
  - Headache [Recovered/Resolved]
  - Ear discomfort [Recovered/Resolved]
  - Rash papular [Recovered/Resolved]
